FAERS Safety Report 20177115 (Version 1)
Quarter: 2021Q4

REPORT INFORMATION
  Report Type: Report from Study
  Country: US (occurrence: US)
  Receive Date: 20211213
  Receipt Date: 20211213
  Transmission Date: 20220303
  Serious: Yes (Hospitalization)
  Sender: FDA-Public Use
  Company Number: US-TAKEDA-US201912509

PATIENT
  Age: 60 Year
  Sex: Male
  Weight: 69 kg

DRUGS (8)
  1. TEDUGLUTIDE [Suspect]
     Active Substance: TEDUGLUTIDE
     Indication: Short-bowel syndrome
     Dosage: 3.2 MILLIGRAM, TED DAILY DOSE MG KG 0.05 (TED DOSES PER WEEK 7)
     Route: 065
     Dates: start: 20170911, end: 20181105
  2. TEDUGLUTIDE [Suspect]
     Active Substance: TEDUGLUTIDE
     Indication: Short-bowel syndrome
     Dosage: 3.2 MILLIGRAM, TED DAILY DOSE MG KG 0.05 (TED DOSES PER WEEK 7)
     Route: 065
     Dates: start: 20170911, end: 20181105
  3. TEDUGLUTIDE [Suspect]
     Active Substance: TEDUGLUTIDE
     Indication: Short-bowel syndrome
     Dosage: 3.2 MILLIGRAM, TED DAILY DOSE MG KG 0.05 (TED DOSES PER WEEK 7)
     Route: 065
     Dates: start: 20170911, end: 20181105
  4. TEDUGLUTIDE [Suspect]
     Active Substance: TEDUGLUTIDE
     Indication: Short-bowel syndrome
     Dosage: 3.2 MILLIGRAM, TED DAILY DOSE MG KG 0.05 (TED DOSES PER WEEK 7)
     Route: 065
     Dates: start: 20170911, end: 20181105
  5. PERCOCET [Concomitant]
     Active Substance: ACETAMINOPHEN\OXYCODONE HYDROCHLORIDE
     Indication: Pain
  6. ATORVASTATIN [Concomitant]
     Active Substance: ATORVASTATIN
     Indication: Blood cholesterol increased
  7. ZOSYN [Concomitant]
     Active Substance: PIPERACILLIN SODIUM\TAZOBACTAM SODIUM
     Indication: Gangrene
  8. VANCOMYCIN [Concomitant]
     Active Substance: VANCOMYCIN
     Indication: Gangrene

REACTIONS (1)
  - Intestinal anastomosis [Recovered/Resolved]

NARRATIVE: CASE EVENT DATE: 20190214
